APPROVED DRUG PRODUCT: ALLOPURINOL SODIUM
Active Ingredient: ALLOPURINOL SODIUM
Strength: EQ 500MG BASE/VIAL
Dosage Form/Route: INJECTABLE;INJECTION
Application: A076870 | Product #001 | TE Code: AP
Applicant: HIKMA PHARMACEUTICALS USA INC
Approved: Aug 26, 2004 | RLD: No | RS: No | Type: RX